FAERS Safety Report 5148729-4 (Version None)
Quarter: 2006Q4

REPORT INFORMATION
  Report Type: 
  Country: None (occurrence: None)
  Receive Date: 20061107
  Receipt Date: 20061025
  Transmission Date: 20070319
  Serious: Yes (Hospitalization)
  Sender: FDA-Public Use
  Company Number: 2006BI013785

PATIENT
  Age: 56 Year
  Sex: Female

DRUGS (7)
  1. AVONEX [Suspect]
     Indication: MULTIPLE SCLEROSIS
     Dosage: 30 UG; QW; IM
     Route: 030
     Dates: end: 19960501
  2. AVONEX [Suspect]
     Indication: MULTIPLE SCLEROSIS
     Dosage: 30 UG; QW; IM
     Route: 030
     Dates: start: 20020201
  3. TEGRETOL-XR [Concomitant]
  4. EFFEXOR [Concomitant]
  5. SERAX [Concomitant]
  6. NEURONTIN [Concomitant]
  7. DEPAKOTE [Concomitant]

REACTIONS (3)
  - AMNESIA [None]
  - CONDITION AGGRAVATED [None]
  - MULTIPLE SCLEROSIS [None]
